FAERS Safety Report 7653282-7 (Version None)
Quarter: 2011Q3

REPORT INFORMATION
  Report Type: 
  Country: None (occurrence: None)
  Receive Date: 20110803
  Receipt Date: 20110725
  Transmission Date: 20111222
  Serious: Yes (Other)
  Sender: FDA-Public Use
  Company Number: ES-MPIJNJ-2011-03020

PATIENT

DRUGS (8)
  1. DEXAMETHASONE [Concomitant]
     Indication: MULTIPLE MYELOMA
     Dosage: UNK
     Route: 065
     Dates: start: 20110426
  2. OMEPRAZOLE [Concomitant]
     Dosage: UNK
  3. VELCADE [Suspect]
     Indication: MULTIPLE MYELOMA
     Dosage: 2 MG/M2, UNK
     Route: 065
     Dates: start: 20110426, end: 20110617
  4. THALIDOMIDE [Concomitant]
     Indication: MULTIPLE MYELOMA
     Dosage: 50 MG, UNK
     Route: 065
     Dates: start: 20110517
  5. THALIDOMIDE [Concomitant]
     Dosage: 100 MG, UNK
     Dates: start: 20110601
  6. CLORAZEPATE DIPOTASSIUM [Concomitant]
     Dosage: UNK
  7. ZOLEDRONIC ACID [Concomitant]
     Indication: MULTIPLE MYELOMA
     Route: 065
  8. DUMIROX [Concomitant]
     Dosage: UNK

REACTIONS (4)
  - VASCULITIS [None]
  - RASH [None]
  - ANGIOEDEMA [None]
  - OFF LABEL USE [None]
